FAERS Safety Report 9408659 (Version 1)
Quarter: 2013Q3

REPORT INFORMATION
  Report Type: Spontaneous
  Country: US (occurrence: US)
  Receive Date: 20130718
  Receipt Date: 20130718
  Transmission Date: 20140515
  Serious: No
  Sender: FDA-Public Use
  Company Number: US-009507513-1307USA008308

PATIENT
  Age: 62 Year
  Sex: Male

DRUGS (4)
  1. JANUMET [Suspect]
     Indication: TYPE 2 DIABETES MELLITUS
     Dosage: TWO TABLETS ONCE A DAY
     Route: 048
     Dates: start: 201207
  2. GLIPIZIDE [Concomitant]
  3. PRINIVIL [Concomitant]
     Route: 048
  4. ZOCOR [Concomitant]
     Route: 048

REACTIONS (2)
  - Blood glucose abnormal [Unknown]
  - Medication residue present [Unknown]
